FAERS Safety Report 13485455 (Version 4)
Quarter: 2017Q3

REPORT INFORMATION
  Report Type: Report from Study
  Country: US (occurrence: US)
  Receive Date: 20170426
  Receipt Date: 20170731
  Transmission Date: 20171127
  Serious: Yes (Other)
  Sender: FDA-Public Use
  Company Number: US-GILEAD-2016-0250498

PATIENT
  Age: 62 Year
  Sex: Female

DRUGS (5)
  1. UPTRAVI [Suspect]
     Active Substance: SELEXIPAG
     Dosage: 800 UG, BID
     Route: 065
     Dates: start: 201701
  2. COUMADIN [Concomitant]
     Active Substance: WARFARIN SODIUM
  3. AMBRISENTAN [Suspect]
     Active Substance: AMBRISENTAN
     Indication: PRODUCT USED FOR UNKNOWN INDICATION
     Dosage: 5 MG, QD
     Route: 065
     Dates: start: 20140814
  4. UPTRAVI [Suspect]
     Active Substance: SELEXIPAG
     Indication: PRODUCT USED FOR UNKNOWN INDICATION
     Dosage: 600 UG, BID
     Route: 065
  5. UPTRAVI [Suspect]
     Active Substance: SELEXIPAG
     Dosage: 400 UG, BID
     Route: 065

REACTIONS (21)
  - Epistaxis [Unknown]
  - Snoring [Not Recovered/Not Resolved]
  - Fatigue [Not Recovered/Not Resolved]
  - Pain in jaw [Not Recovered/Not Resolved]
  - Apathy [Unknown]
  - Nasal obstruction [Not Recovered/Not Resolved]
  - Headache [Not Recovered/Not Resolved]
  - Scab [Not Recovered/Not Resolved]
  - Weight increased [Unknown]
  - Condition aggravated [Not Recovered/Not Resolved]
  - Dry mouth [Unknown]
  - Wheezing [Not Recovered/Not Resolved]
  - Back pain [Not Recovered/Not Resolved]
  - Myocardial infarction [Unknown]
  - Chest discomfort [Recovered/Resolved]
  - Diarrhoea [Not Recovered/Not Resolved]
  - Dyspnoea [Not Recovered/Not Resolved]
  - Asthenia [Unknown]
  - Diarrhoea haemorrhagic [Unknown]
  - Pain [Not Recovered/Not Resolved]
  - Oxygen consumption increased [Unknown]
